FAERS Safety Report 6247801-5 (Version None)
Quarter: 2009Q2

REPORT INFORMATION
  Report Type: 
  Country: None (occurrence: None)
  Receive Date: 20090626
  Receipt Date: 20090617
  Transmission Date: 20091009
  Serious: Yes (Hospitalization)
  Sender: FDA-Public Use
  Company Number: PHHO2009JP07621

PATIENT
  Sex: Male
  Weight: 88 kg

DRUGS (10)
  1. MYCOPHENOLATE MOFETIL [Suspect]
     Indication: RENAL TRANSPLANT
     Dosage: UNK
     Route: 048
     Dates: start: 20090109
  2. NEORAL [Suspect]
     Indication: RENAL TRANSPLANT
     Dosage: UNK
     Route: 048
     Dates: start: 20090105
  3. NEORAL [Suspect]
     Dosage: 350 MG DAILY
     Route: 048
     Dates: start: 20090330
  4. PREDNISOLONE [Suspect]
     Indication: RENAL TRANSPLANT
     Dosage: 5 MG / DAY
     Route: 048
     Dates: start: 20090220
  5. PARIET [Concomitant]
     Indication: GASTRITIS PROPHYLAXIS
  6. ASPIRIN [Concomitant]
     Indication: PROPHYLAXIS
  7. ALLOID [Concomitant]
     Indication: GASTRITIS PROPHYLAXIS
  8. AMLODIPINE [Concomitant]
     Indication: HYPERTENSION
  9. ALOSITOL [Concomitant]
     Indication: HYPERURICAEMIA
  10. OLMETEC [Concomitant]
     Indication: HYPERTENSION

REACTIONS (4)
  - ABDOMINAL PAIN [None]
  - DIARRHOEA [None]
  - ENTEROCOLITIS [None]
  - PYREXIA [None]
